FAERS Safety Report 6077500-4 (Version None)
Quarter: 2009Q1

REPORT INFORMATION
  Report Type: 
  Country: None (occurrence: None)
  Receive Date: 20090213
  Receipt Date: 20090209
  Transmission Date: 20090719
  Serious: Yes (Hospitalization)
  Sender: FDA-Public Use
  Company Number: FR-ASTRAZENECA-2009CG00346

PATIENT
  Age: 0 Day
  Sex: Male
  Weight: 1.7 kg

DRUGS (1)
  1. TENORMIN [Suspect]
     Indication: MARFAN'S SYNDROME
     Route: 064
     Dates: end: 20090119

REACTIONS (2)
  - FOETAL DISTRESS SYNDROME [None]
  - RESPIRATORY DISTRESS [None]
